FAERS Safety Report 5340032-2 (Version None)
Quarter: 2007Q2

REPORT INFORMATION
  Report Type: 
  Country: None (occurrence: None)
  Receive Date: 20070529
  Receipt Date: 20070522
  Transmission Date: 20071010
  Serious: Yes (Hospitalization)
  Sender: FDA-Public Use
  Company Number: THQ2007A00310

PATIENT
  Age: 61 Year
  Sex: Male

DRUGS (13)
  1. ACTOS [Suspect]
     Indication: DIABETES MELLITUS NON-INSULIN-DEPENDENT
     Dosage: 15 MG (15 MG, 1 IN 1 D) PER ORAL
     Route: 048
     Dates: start: 20030308, end: 20031014
  2. NPH INSULIN (INSULIN INJECTION, ISOPHANE) [Concomitant]
  3. MONOPRIL [Concomitant]
  4. AMLODIPINE BESYLATE [Concomitant]
  5. ADALAT [Concomitant]
  6. CARVEDILOL [Concomitant]
  7. ZAROXOLYN [Concomitant]
  8. FUROSEMIDE [Concomitant]
  9. THIOCTACID (THIOCTIC ACID) [Concomitant]
  10. BEVANTOLOL [Concomitant]
  11. CILOSTAZOL [Concomitant]
  12. DOXAZOSIN MESYLATE [Concomitant]
  13. TRIMEBUTINE MALEATE [Concomitant]

REACTIONS (11)
  - BLOOD CREATININE INCREASED [None]
  - CONDITION AGGRAVATED [None]
  - DIABETES MELLITUS [None]
  - DRUG INEFFECTIVE [None]
  - GLYCOSYLATED HAEMOGLOBIN INCREASED [None]
  - HAEMATOCRIT DECREASED [None]
  - HAEMOGLOBIN DECREASED [None]
  - HYPERTENSION [None]
  - OEDEMA [None]
  - PROTEINURIA [None]
  - RENAL IMPAIRMENT [None]
